FAERS Safety Report 23723854 (Version 2)
Quarter: 2024Q2

REPORT INFORMATION
  Report Type: Spontaneous
  Country: IN (occurrence: IN)
  Receive Date: 20240409
  Receipt Date: 20240514
  Transmission Date: 20240717
  Serious: Yes (Other)
  Sender: FDA-Public Use
  Company Number: IN-SUN PHARMACEUTICAL INDUSTRIES LTD-2024R1-440196

PATIENT
  Age: 36 Year
  Sex: Male

DRUGS (2)
  1. VALPROATE [Suspect]
     Active Substance: VALPROIC ACID
     Indication: Bipolar disorder
     Dosage: 1500 MILLIGRAM
     Route: 065
  2. VALPROATE [Suspect]
     Active Substance: VALPROIC ACID
     Indication: Intellectual disability

REACTIONS (7)
  - Obesity [Recovering/Resolving]
  - Seizure [Recovering/Resolving]
  - Hyperammonaemia [Recovering/Resolving]
  - Catatonia [Recovering/Resolving]
  - Drug resistance [Unknown]
  - Cerebellar atrophy [Recovering/Resolving]
  - Intellectual disability [Recovering/Resolving]
